FAERS Safety Report 6889171-5 (Version None)
Quarter: 2010Q3

REPORT INFORMATION
  Report Type: 
  Country: None (occurrence: None)
  Receive Date: 20100730
  Receipt Date: 20080108
  Transmission Date: 20110219
  Serious: No
  Sender: FDA-Public Use
  Company Number: US-PFIZER INC-2008003491

PATIENT
  Sex: Female
  Weight: 50.454 kg

DRUGS (8)
  1. LIPITOR [Suspect]
     Indication: BLOOD CHOLESTEROL INCREASED
     Route: 048
     Dates: start: 20071210
  2. SYNTHROID [Concomitant]
     Dates: start: 19570101
  3. FOSAMAX [Concomitant]
  4. WARFARIN SODIUM [Concomitant]
  5. PROPAFENONE [Concomitant]
     Indication: CARDIAC FLUTTER
  6. VALSARTAN [Concomitant]
  7. AMLODIPINE BESYLATE/VALSARTAN [Concomitant]
     Indication: HYPERTENSION
  8. LUMIGAN [Concomitant]
     Indication: GLAUCOMA

REACTIONS (4)
  - ABDOMINAL PAIN [None]
  - MALAISE [None]
  - PAIN [None]
  - RASH [None]
